FAERS Safety Report 5008463-8 (Version None)
Quarter: 2006Q2

REPORT INFORMATION
  Report Type: 
  Country: None (occurrence: None)
  Receive Date: 20060523
  Receipt Date: 20060516
  Transmission Date: 20061013
  Serious: Yes (Life-Threatening, Hospitalization)
  Sender: FDA-Public Use
  Company Number: TR-JNJFOC-20060503617

PATIENT
  Sex: Male
  Weight: 56 kg

DRUGS (3)
  1. REMICADE [Suspect]
     Indication: JUVENILE ARTHRITIS
     Dosage: 5 INFUSIONS
     Route: 042
  2. COLCHICUM-DISPERT [Concomitant]
     Route: 048
  3. METHOTREXATE [Concomitant]
     Indication: JUVENILE ARTHRITIS
     Route: 048

REACTIONS (1)
  - TUBERCULOSIS [None]
